FAERS Safety Report 16060200 (Version 4)
Quarter: 2020Q3

REPORT INFORMATION
  Report Type: Spontaneous
  Country: US (occurrence: US)
  Receive Date: 20190312
  Receipt Date: 20200909
  Transmission Date: 20201102
  Serious: Yes (Hospitalization, Other)
  Sender: FDA-Public Use
  Company Number: US-BIOGEN-2019BI00706475

PATIENT
  Age: 68 Year
  Sex: Female
  Weight: 95.79 kg

DRUGS (2)
  1. TYSABRI [Suspect]
     Active Substance: NATALIZUMAB
     Indication: MULTIPLE SCLEROSIS
     Route: 042
     Dates: start: 20080409, end: 20080917
  2. TYSABRI [Suspect]
     Active Substance: NATALIZUMAB
     Route: 065
     Dates: start: 20161116, end: 20190116

REACTIONS (6)
  - Pemphigoid [Recovered/Resolved]
  - Stress [Unknown]
  - Syncope [Recovered/Resolved]
  - Fear [Recovered/Resolved]
  - Blindness transient [Unknown]
  - Pulmonary embolism [Recovered/Resolved]

NARRATIVE: CASE EVENT DATE: 201901
